FAERS Safety Report 7110045-9 (Version None)
Quarter: 2010Q4

REPORT INFORMATION
  Report Type: 
  Country: None (occurrence: None)
  Receive Date: 20101118
  Receipt Date: 20101110
  Transmission Date: 20110411
  Serious: Yes (Hospitalization)
  Sender: FDA-Public Use
  Company Number: US-TEVA-255245USA

PATIENT
  Sex: Male

DRUGS (7)
  1. COPAXONE [Suspect]
     Indication: MULTIPLE SCLEROSIS
     Route: 058
  2. AMANTADINE [Concomitant]
  3. AMLODIPINE [Concomitant]
  4. BACLOFEN [Concomitant]
  5. GABAPENTIN [Concomitant]
  6. MODAFINIL [Concomitant]
  7. OXYCODONE HCL [Concomitant]

REACTIONS (1)
  - RESPIRATORY DISORDER [None]
